FAERS Safety Report 25346218 (Version 2)
Quarter: 2025Q2

REPORT INFORMATION
  Report Type: Report from Study
  Country: US (occurrence: US)
  Receive Date: 20250522
  Receipt Date: 20250623
  Transmission Date: 20250716
  Serious: Yes (Hospitalization)
  Sender: ACADIA PHARMACEUTICALS
  Company Number: US-ACADIA PHARMACEUTICALS INC.-ACA-2025-PIM-005996

PATIENT
  Age: 74 Year
  Sex: Female

DRUGS (41)
  1. NUPLAZID [Suspect]
     Active Substance: PIMAVANSERIN TARTRATE
     Indication: Parkinson^s disease psychosis
     Dosage: 34 MILLIGRAM, QD
     Route: 048
     Dates: start: 20250325, end: 20250613
  2. SPIRIVA RESPIMAT [Concomitant]
     Active Substance: TIOTROPIUM BROMIDE
  3. SOLIFENACIN [Concomitant]
     Active Substance: SOLIFENACIN
  4. PROAIR HFA [Concomitant]
     Active Substance: ALBUTEROL SULFATE
  5. NITRO-DUR [Concomitant]
     Active Substance: NITROGLYCERIN
  6. MUCINEX [Concomitant]
     Active Substance: GUAIFENESIN
  7. MONTELUKAST [Concomitant]
     Active Substance: MONTELUKAST
  8. MODAFINIL [Concomitant]
     Active Substance: MODAFINIL
  9. MIRALAX [Concomitant]
     Active Substance: POLYETHYLENE GLYCOL 3350
  10. MAGNESIUM CITRATE [Concomitant]
     Active Substance: MAGNESIUM CITRATE
  11. LORAZEPAM [Concomitant]
     Active Substance: LORAZEPAM
  12. LORATADINE [Concomitant]
     Active Substance: LORATADINE
  13. LEVALBUTEROL [Concomitant]
     Active Substance: LEVALBUTEROL
  14. LAMOTRIGINE [Concomitant]
     Active Substance: LAMOTRIGINE
  15. JANUVIA [Concomitant]
     Active Substance: SITAGLIPTIN PHOSPHATE
  16. HYDROXYCHLOROQUINE [Concomitant]
     Active Substance: HYDROXYCHLOROQUINE
  17. GABAPENTIN [Concomitant]
     Active Substance: GABAPENTIN
  18. EPIPEN [EPINEPHRINE HYDROCHLORIDE] [Concomitant]
  19. DUPIXENT [Concomitant]
     Active Substance: DUPILUMAB
  20. CARVEDILOL [Concomitant]
     Active Substance: CARVEDILOL
  21. CALCIUM\VITAMIN D [Concomitant]
     Active Substance: CALCIUM\VITAMIN D
  22. BUSPIRONE [Concomitant]
     Active Substance: BUSPIRONE HYDROCHLORIDE
  23. BUDESONIDE [Concomitant]
     Active Substance: BUDESONIDE
  24. BREYNA [Concomitant]
     Active Substance: BUDESONIDE\FORMOTEROL FUMARATE
  25. BACLOFEN [Concomitant]
     Active Substance: BACLOFEN
  26. AMPHETAMINE [Concomitant]
     Active Substance: AMPHETAMINE
  27. DEXTROAMPHETAMINE SULFATE [Concomitant]
     Active Substance: DEXTROAMPHETAMINE SULFATE
  28. ALLOPURINOL [Concomitant]
     Active Substance: ALLOPURINOL
  29. ALBUTEROL SULFATE [Concomitant]
     Active Substance: ALBUTEROL SULFATE
  30. AIRSUPRA [BUDESONIDE;SALBUTAMOL SULFATE] [Concomitant]
  31. ADDERALL [Concomitant]
     Active Substance: AMPHETAMINE ASPARTATE\AMPHETAMINE SULFATE\DEXTROAMPHETAMINE SACCHARATE\DEXTROAMPHETAMINE SULFATE
  32. PRENATE [DIFLUPREDNATE] [Concomitant]
  33. CARBIDOPA\LEVODOPA [Concomitant]
     Active Substance: CARBIDOPA\LEVODOPA
  34. TRIAMCINOLONE [Concomitant]
     Active Substance: TRIAMCINOLONE
  35. SYMBICORT [Concomitant]
     Active Substance: BUDESONIDE\FORMOTEROL FUMARATE DIHYDRATE
  36. PANTOPRAZOLE [Concomitant]
     Active Substance: PANTOPRAZOLE
  37. CARAFATE [Concomitant]
     Active Substance: SUCRALFATE
  38. VITAMIN B12 [Concomitant]
     Active Substance: CYANOCOBALAMIN
  39. TYLENOL ARTHRITIS PAIN [Concomitant]
     Active Substance: ACETAMINOPHEN
  40. TRINTELLIX [Concomitant]
     Active Substance: VORTIOXETINE HYDROBROMIDE
  41. SPIRONOLACTONE [Concomitant]
     Active Substance: SPIRONOLACTONE

REACTIONS (6)
  - Urinary tract infection [Not Recovered/Not Resolved]
  - Diarrhoea [Unknown]
  - Vomiting [Unknown]
  - Nausea [Unknown]
  - Fall [Unknown]
  - Fatigue [Unknown]

NARRATIVE: CASE EVENT DATE: 20250502
